FAERS Safety Report 9631110 (Version 3)
Quarter: 2013Q4

REPORT INFORMATION
  Report Type: Report from Study
  Country: BR (occurrence: BR)
  Receive Date: 20131018
  Receipt Date: 20131118
  Transmission Date: 20140711
  Serious: Yes (Other)
  Sender: FDA-Public Use
  Company Number: PHHY2013BR115095

PATIENT
  Age: 42 Year
  Sex: Female
  Weight: 80 kg

DRUGS (4)
  1. GILENYA [Suspect]
     Indication: MULTIPLE SCLEROSIS
     Dosage: 0.5 MG, UNK
     Route: 048
  2. RIVOTRIL [Concomitant]
     Dosage: 2 MG, UNK
     Dates: start: 2008
  3. BEZAFIBRATE [Concomitant]
  4. NEULEPTIL [Concomitant]

REACTIONS (5)
  - Chest discomfort [Recovered/Resolved]
  - Nausea [Recovered/Resolved]
  - Dizziness [Recovered/Resolved]
  - Heart rate decreased [Recovered/Resolved]
  - Headache [Recovered/Resolved]
